FAERS Safety Report 23956197 (Version 2)
Quarter: 2024Q3

REPORT INFORMATION
  Report Type: Spontaneous
  Country: US (occurrence: US)
  Receive Date: 20240610
  Receipt Date: 20240814
  Transmission Date: 20241017
  Serious: No
  Sender: SANOFI AVENTIS
  Company Number: US-SA-SAC20240605000181

PATIENT
  Age: 45 Year
  Sex: Male
  Weight: 141.04 kg

DRUGS (4)
  1. ELOCTATE [Suspect]
     Active Substance: EFMOROCTOCOG ALFA
     Indication: Factor VIII deficiency
     Dosage: 5800 U (4000 U+1800 U), BIW
     Route: 042
     Dates: start: 202403
  2. ELOCTATE [Suspect]
     Active Substance: EFMOROCTOCOG ALFA
     Indication: Factor VIII deficiency
     Dosage: 5800 U (4000 U+1800 U), BIW
     Route: 042
     Dates: start: 202403
  3. ELOCTATE [Suspect]
     Active Substance: EFMOROCTOCOG ALFA
     Indication: Haemorrhage
     Dosage: 5800 U (4000 U+1800 U), EVERY 24 HOURS AS NEEDED FOR BREAKTHROUGH
     Route: 042
     Dates: start: 202403
  4. ELOCTATE [Suspect]
     Active Substance: EFMOROCTOCOG ALFA
     Indication: Haemorrhage
     Dosage: 5800 U (4000 U+1800 U), EVERY 24 HOURS AS NEEDED FOR BREAKTHROUGH
     Route: 042
     Dates: start: 202403

REACTIONS (4)
  - Traumatic haemorrhage [Recovered/Resolved]
  - Head injury [Unknown]
  - Haemorrhage [Not Recovered/Not Resolved]
  - Weight decreased [Unknown]

NARRATIVE: CASE EVENT DATE: 20240101
